FAERS Safety Report 8154007-1 (Version None)
Quarter: 2012Q1

REPORT INFORMATION
  Report Type: 
  Country: None (occurrence: None)
  Receive Date: 20120221
  Receipt Date: 20120221
  Transmission Date: 20120608
  Serious: Yes (Life-Threatening, Hospitalization)
  Sender: FDA-Public Use
  Company Number: None

PATIENT
  Age: 22 Year
  Sex: Female
  Weight: 58.967 kg

DRUGS (1)
  1. MIRENA [Suspect]
     Indication: CONTRACEPTION
     Dates: start: 20090810, end: 20111028

REACTIONS (21)
  - EOSINOPHIL COUNT INCREASED [None]
  - BONE PAIN [None]
  - FALL [None]
  - GAIT DISTURBANCE [None]
  - DISTURBANCE IN ATTENTION [None]
  - ANXIETY [None]
  - PANIC ATTACK [None]
  - WHITE BLOOD CELL COUNT INCREASED [None]
  - ALOPECIA [None]
  - CONFUSIONAL STATE [None]
  - PAIN IN EXTREMITY [None]
  - ANAPHYLACTIC REACTION [None]
  - HYPERSENSITIVITY [None]
  - FATIGUE [None]
  - PARAESTHESIA [None]
  - BACK PAIN [None]
  - ABDOMINAL PAIN UPPER [None]
  - ARTHRALGIA [None]
  - BURNING SENSATION [None]
  - LOSS OF CONSCIOUSNESS [None]
  - HYPOAESTHESIA [None]
